FAERS Safety Report 9125211 (Version 1)
Quarter: 2013Q1

REPORT INFORMATION
  Report Type: Spontaneous
  Country: US (occurrence: US)
  Receive Date: 20130117
  Receipt Date: 20130117
  Transmission Date: 20140127
  Serious: Yes (Death, Other)
  Sender: FDA-Public Use
  Company Number: US-UCBSA-075198

PATIENT
  Age: 39 Year
  Sex: Male

DRUGS (8)
  1. ALPRAZOLAM [Suspect]
  2. ACETAMINOPHEN/ DIPHENHYDRAMINE [Suspect]
  3. LORAZEPAM [Suspect]
  4. ETHANOL [Suspect]
  5. ANDROGENS [Suspect]
  6. NANDROLONE [Suspect]
  7. METAXALONE [Suspect]
  8. IBUPROFEN [Suspect]

REACTIONS (1)
  - Completed suicide [Fatal]
